FAERS Safety Report 17547038 (Version 1)
Quarter: 2020Q1

REPORT INFORMATION
  Report Type: Report from Study
  Country: US (occurrence: US)
  Receive Date: 20200316
  Receipt Date: 20200316
  Transmission Date: 20200409
  Serious: Yes (Other)
  Sender: FDA-Public Use
  Company Number: US-DSJP-DSU-2020-105920

PATIENT

DRUGS (2)
  1. PEXIDARTINIB [Suspect]
     Active Substance: PEXIDARTINIB
     Dosage: 600 MG, QD
     Route: 048
     Dates: start: 202002
  2. PEXIDARTINIB [Suspect]
     Active Substance: PEXIDARTINIB
     Indication: GIANT CELL TUMOUR OF TENDON SHEATH
     Dosage: 800 MG, QD
     Route: 048
     Dates: start: 202001, end: 2020

REACTIONS (5)
  - Aspartate aminotransferase increased [Unknown]
  - Fatigue [Unknown]
  - Gamma-glutamyltransferase [Unknown]
  - Alanine aminotransferase increased [Unknown]
  - Hepatic enzyme increased [Unknown]

NARRATIVE: CASE EVENT DATE: 2020
